FAERS Safety Report 4406783-9 (Version None)
Quarter: 2004Q3

REPORT INFORMATION
  Report Type: 
  Country: None (occurrence: None)
  Receive Date: 20040715
  Receipt Date: 20040707
  Transmission Date: 20050211
  Serious: Yes (Death, Hospitalization, Disabling, Other)
  Sender: FDA-Public Use
  Company Number: 2004JP000972

PATIENT
  Age: 59 Year
  Sex: Male
  Weight: 63 kg

DRUGS (7)
  1. PROGRAF [Suspect]
     Indication: BONE MARROW TRANSPLANT
     Dosage: UID/QD, INTRAVENOUS; SEE IMAGE
     Route: 042
     Dates: start: 20031208, end: 20031220
  2. PROGRAF [Suspect]
     Indication: BONE MARROW TRANSPLANT
     Dosage: UID/QD, INTRAVENOUS; SEE IMAGE
     Route: 042
     Dates: start: 20031220, end: 20040114
  3. PROGRAF [Suspect]
     Indication: BONE MARROW TRANSPLANT
     Dosage: UID/QD, INTRAVENOUS; SEE IMAGE
     Route: 042
     Dates: start: 20040115, end: 20040206
  4. PROGRAF [Suspect]
     Indication: BONE MARROW TRANSPLANT
     Dosage: UID/QD, INTRAVENOUS; SEE IMAGE
     Route: 042
     Dates: start: 20040303, end: 20040308
  5. PROGRAF [Suspect]
     Indication: BONE MARROW TRANSPLANT
     Dosage: UID/QD, INTRAVENOUS; SEE IMAGE
     Route: 042
     Dates: start: 20040308, end: 20040311
  6. PROGRAF [Suspect]
     Indication: BONE MARROW TRANSPLANT
     Dosage: UID/QD, INTRAVENOUS; SEE IMAGE
     Route: 042
     Dates: start: 20040311, end: 20040317
  7. PROGRAF [Suspect]
     Indication: BONE MARROW TRANSPLANT
     Dosage: UID/QD, INTRAVENOUS; SEE IMAGE
     Route: 042
     Dates: start: 20040317, end: 20040325

REACTIONS (16)
  - BRAIN MASS [None]
  - CEREBRAL HAEMORRHAGE [None]
  - DEPRESSED LEVEL OF CONSCIOUSNESS [None]
  - DISORIENTATION [None]
  - GASTROINTESTINAL DISORDER [None]
  - GRAFT VERSUS HOST DISEASE [None]
  - HAEMOSIDEROSIS [None]
  - INFECTION [None]
  - LIVER DISORDER [None]
  - NERVOUS SYSTEM DISORDER [None]
  - PULMONARY MYCOSIS [None]
  - PYELONEPHRITIS [None]
  - RENAL DISORDER [None]
  - RENAL FAILURE [None]
  - SOMNOLENCE [None]
  - SPLEEN DISORDER [None]
